FAERS Safety Report 19849644 (Version 9)
Quarter: 2022Q4

REPORT INFORMATION
  Report Type: Report from Study
  Country: US (occurrence: US)
  Receive Date: 20210918
  Receipt Date: 20221219
  Transmission Date: 20230113
  Serious: Yes (Life-Threatening, Hospitalization, Other)
  Sender: FDA-Public Use
  Company Number: US-AUROBINDO-AUR-APL-2021-039184

PATIENT
  Age: 61 Year
  Sex: Female
  Weight: 180.4 kg

DRUGS (8)
  1. BELINOSTAT [Suspect]
     Active Substance: BELINOSTAT
     Indication: Acute myeloid leukaemia
     Dosage: 9850  MILLIGRAM
     Route: 065
     Dates: start: 20210323, end: 20210327
  2. BELINOSTAT [Suspect]
     Active Substance: BELINOSTAT
     Dosage: 1000 MILLIGRAM/SQ. METER, ONCE A DAY FOR 5 DAYS IN A 21 DAYS CYCLE
     Route: 042
     Dates: start: 20210323
  3. PEVONEDISTAT [Suspect]
     Active Substance: PEVONEDISTAT
     Indication: Product used for unknown indication
     Dosage: 37 MILLIGRAM/SQ. METER, ONCE A DAY, ON DAY01, DAY03 AND DAY 05 IN A 21 DAYS CYCLE
     Route: 042
     Dates: start: 20210323, end: 20210326
  4. PEVONEDISTAT [Suspect]
     Active Substance: PEVONEDISTAT
     Dosage: 219 MILLIGRAM
     Route: 065
     Dates: start: 20210323
  5. MORPHINE SULFATE [Concomitant]
     Active Substance: MORPHINE SULFATE
     Indication: Product used for unknown indication
     Dosage: UNK
     Route: 042
  6. NEURONTIN [Concomitant]
     Active Substance: GABAPENTIN
     Indication: Product used for unknown indication
     Route: 048
  7. CYMBALTA [Concomitant]
     Active Substance: DULOXETINE HYDROCHLORIDE
     Indication: Product used for unknown indication
  8. VITAMIN B12 [Concomitant]
     Active Substance: CYANOCOBALAMIN
     Indication: Product used for unknown indication
     Route: 030

REACTIONS (16)
  - Neutrophil count decreased [Unknown]
  - Pain in extremity [Recovered/Resolved]
  - Platelet count decreased [Unknown]
  - Peripheral motor neuropathy [Unknown]
  - Anaemia [Unknown]
  - Hypokalaemia [Unknown]
  - Hypoaesthesia [Unknown]
  - Vomiting [Unknown]
  - Fatigue [Unknown]
  - Cough [Unknown]
  - White blood cell count decreased [Unknown]
  - Dizziness [Unknown]
  - Emotional disorder [Unknown]
  - Gait disturbance [Unknown]
  - Paraesthesia [Unknown]
  - Insomnia [Unknown]

NARRATIVE: CASE EVENT DATE: 20210323
